FAERS Safety Report 6882254-5 (Version None)
Quarter: 2010Q3

REPORT INFORMATION
  Report Type: 
  Country: None (occurrence: None)
  Receive Date: 20100729
  Receipt Date: 20100721
  Transmission Date: 20110219
  Serious: Yes (Hospitalization)
  Sender: FDA-Public Use
  Company Number: US-ELI_LILLY_AND_COMPANY-US201007005421

PATIENT
  Sex: Female

DRUGS (2)
  1. BYETTA [Suspect]
     Route: 058
  2. METFORMIN HCL [Concomitant]

REACTIONS (2)
  - METABOLIC ACIDOSIS [None]
  - RENAL IMPAIRMENT [None]
